FAERS Safety Report 7068304-4 (Version None)
Quarter: 2010Q4

REPORT INFORMATION
  Report Type: 
  Country: None (occurrence: None)
  Receive Date: 20101028
  Receipt Date: 20101020
  Transmission Date: 20110411
  Serious: Yes (Hospitalization)
  Sender: FDA-Public Use
  Company Number: A0800196A

PATIENT
  Age: 54 Year
  Sex: Male
  Weight: 109.1 kg

DRUGS (9)
  1. AVANDIA [Suspect]
     Indication: DIABETES MELLITUS
     Dosage: 4MG PER DAY
     Route: 048
  2. AMARYL [Concomitant]
  3. LOPRESSOR [Concomitant]
  4. ZOCOR [Concomitant]
  5. CARDIZEM [Concomitant]
  6. CLONIDINE [Concomitant]
  7. DIOVAN [Concomitant]
  8. PEPCID [Concomitant]
  9. NEXIUM [Concomitant]

REACTIONS (6)
  - ACUTE CORONARY SYNDROME [None]
  - ATRIOVENTRICULAR BLOCK [None]
  - CARDIAC FAILURE CONGESTIVE [None]
  - CORONARY ARTERY BYPASS [None]
  - MYOCARDIAL INFARCTION [None]
  - RENAL FAILURE [None]
